FAERS Safety Report 9221416 (Version 1)
Quarter: 2013Q2

REPORT INFORMATION
  Report Type: Spontaneous
  Country: US (occurrence: US)
  Receive Date: 20130410
  Receipt Date: 20130410
  Transmission Date: 20140414
  Serious: No
  Sender: FDA-Public Use
  Company Number: US-BIOGENIDEC-2013BI031916

PATIENT
  Sex: Female

DRUGS (3)
  1. TYSABRI [Suspect]
     Indication: MULTIPLE SCLEROSIS
     Route: 042
     Dates: start: 20071114, end: 2013
  2. SEROQUEL [Concomitant]
     Indication: BIPOLAR DISORDER
  3. LORAZEPAM [Concomitant]
     Indication: BIPOLAR DISORDER

REACTIONS (3)
  - Mania [Not Recovered/Not Resolved]
  - Amnesia [Not Recovered/Not Resolved]
  - Nausea [Recovered/Resolved]
